FAERS Safety Report 10163442 (Version 2)
Quarter: 2014Q2

REPORT INFORMATION
  Report Type: Spontaneous
  Country: US (occurrence: US)
  Receive Date: 20140509
  Receipt Date: 20140509
  Transmission Date: 20141212
  Serious: Yes (Hospitalization)
  Sender: FDA-Public Use
  Company Number: US-ASTRAZENECA-2011SE18682

PATIENT
  Age: 44 Year
  Sex: Female
  Weight: 52.6 kg

DRUGS (14)
  1. NEXIUM [Suspect]
     Route: 048
  2. SEROQUEL XR [Suspect]
     Indication: BIPOLAR DISORDER
     Dosage: 2 SEROQUEL XR 200 MG TABLETS INSTEAD OF 3 SEROQUEL XR 200 MG TABLETS HS
     Route: 048
     Dates: start: 2009, end: 20140424
  3. SEROQUEL XR [Suspect]
     Indication: BIPOLAR DISORDER
     Route: 048
     Dates: start: 2009
  4. SEROQUEL XR [Suspect]
     Indication: BIPOLAR DISORDER
     Route: 048
     Dates: start: 20140424
  5. OMEPRAZOLE [Suspect]
     Indication: ABDOMINAL DISCOMFORT
     Route: 048
  6. OMEPRAZOLE [Suspect]
     Indication: ULCER
     Route: 048
  7. REMIRON [Concomitant]
     Indication: BIPOLAR DISORDER
     Route: 048
     Dates: start: 201403
  8. TRAZADONE [Concomitant]
     Indication: BIPOLAR DISORDER
     Route: 048
     Dates: start: 2009
  9. THIAMINE [Concomitant]
     Indication: ADJUVANT THERAPY
     Route: 048
  10. NEURONTIN [Concomitant]
     Indication: AFFECTIVE DISORDER
     Route: 048
     Dates: start: 201403
  11. NEURONTIN [Concomitant]
     Indication: BIPOLAR DISORDER
     Route: 048
     Dates: start: 201403
  12. PRENATAL VITAMIN [Concomitant]
     Indication: SUPPLEMENTATION THERAPY
     Dosage: 1 PILL DAILY
     Route: 048
  13. CRANBERRY [Concomitant]
     Indication: SUPPLEMENTATION THERAPY
     Dosage: 1 PILL DAILY
     Route: 048
  14. MIRALAX [Concomitant]
     Dosage: NR PRN
     Route: 048

REACTIONS (3)
  - Mental disorder [Unknown]
  - Intentional product misuse [Unknown]
  - Drug ineffective [Unknown]
